FAERS Safety Report 22230174 (Version 2)
Quarter: 2023Q2

REPORT INFORMATION
  Report Type: Report from Study
  Country: CA (occurrence: CA)
  Receive Date: 20230419
  Receipt Date: 20230510
  Transmission Date: 20230722
  Serious: Yes (Hospitalization)
  Sender: FDA-Public Use
  Company Number: CA-TAIHOP-2023-002566

PATIENT
  Age: 77 Year
  Sex: Male

DRUGS (1)
  1. LONSURF [Suspect]
     Active Substance: TIPIRACIL HYDROCHLORIDE\TRIFLURIDINE
     Indication: Colorectal cancer metastatic
     Dosage: DOSE AND FREQUENCY WERE UNKNOWN/ CYCLE 1
     Route: 048
     Dates: start: 20230320

REACTIONS (2)
  - Disease progression [Unknown]
  - Dysphonia [Unknown]
